FAERS Safety Report 8024802-8 (Version None)
Quarter: 2012Q1

REPORT INFORMATION
  Report Type: 
  Country: None (occurrence: None)
  Receive Date: 20120105
  Receipt Date: 20120103
  Transmission Date: 20120608
  Serious: No
  Sender: FDA-Public Use
  Company Number: US-B.I. PHARMACEUTICALS,INC./RIDGEFIELD-2012-BP-00167BP

PATIENT
  Age: 67 Year
  Sex: Female

DRUGS (6)
  1. PRADAXA [Suspect]
     Indication: ATRIAL FIBRILLATION
     Dosage: 300 MG
     Route: 048
     Dates: start: 20111228, end: 20120101
  2. NORVASC [Concomitant]
     Indication: HYPERTENSION
     Dosage: 5 MG
     Route: 048
  3. METOPROLOL SUCCINATE [Concomitant]
     Indication: HYPERTENSION
     Dosage: 50 MG
     Route: 048
  4. FISH OIL [Concomitant]
     Indication: SUPPLEMENTATION THERAPY
  5. VITAMIN D [Concomitant]
     Indication: SUPPLEMENTATION THERAPY
  6. SYNTHROID [Concomitant]
     Indication: HYPOTHYROIDISM
     Dosage: 0.75 MCG
     Route: 048

REACTIONS (4)
  - ASTHENIA [None]
  - ERYTHEMA [None]
  - DIZZINESS [None]
  - ABDOMINAL DISCOMFORT [None]
